FAERS Safety Report 6263241-7 (Version None)
Quarter: 2009Q3

REPORT INFORMATION
  Report Type: 
  Country: None (occurrence: None)
  Receive Date: 20090710
  Receipt Date: 20090702
  Transmission Date: 20100115
  Serious: Yes (Death, Life-Threatening, Other)
  Sender: FDA-Public Use
  Company Number: DE-BAYER-200810443GPV

PATIENT
  Age: 65 Year
  Sex: Male
  Weight: 80 kg

DRUGS (8)
  1. ACTIMAX 400 [Suspect]
     Indication: BRONCHITIS
     Dosage: TOTAL DAILY DOSE: 400 MG  UNIT DOSE: 400 MG
     Route: 048
     Dates: start: 20080103, end: 20080103
  2. SINGULAIR [Concomitant]
     Indication: ASTHMA
  3. SPIRIVA [Concomitant]
  4. ATROVENT [Concomitant]
  5. THEOPHYLLIN 250 [Concomitant]
  6. BAMBEC [Concomitant]
  7. AQUAPHOR 40 (XIPAMID) [Concomitant]
  8. LISINOPRIL [Concomitant]

REACTIONS (3)
  - DYSPNOEA [None]
  - LOSS OF CONSCIOUSNESS [None]
  - TACHYCARDIA [None]
